FAERS Safety Report 9574713 (Version 2)
Quarter: 2014Q2

REPORT INFORMATION
  Report Type: Spontaneous
  Country: DE (occurrence: DE)
  Receive Date: 20131001
  Receipt Date: 20140519
  Transmission Date: 20141212
  Serious: Yes (Death)
  Sender: FDA-Public Use
  Company Number: DE-BRISTOL-MYERS SQUIBB COMPANY-19409176

PATIENT
  Age: 85 Year
  Sex: Female
  Weight: 54 kg

DRUGS (2)
  1. ELIQUIS [Suspect]
     Route: 048
     Dates: start: 20130820
  2. METOPROLOL [Concomitant]

REACTIONS (1)
  - Cerebellar infarction [Fatal]
